FAERS Safety Report 8299871-0 (Version None)
Quarter: 2012Q2

REPORT INFORMATION
  Report Type: 
  Country: None (occurrence: None)
  Receive Date: 20120419
  Receipt Date: 20120322
  Transmission Date: 20120825
  Serious: Yes (Death, Hospitalization)
  Sender: FDA-Public Use
  Company Number: US-BAXTER-2012BAX000377

PATIENT
  Sex: Male

DRUGS (2)
  1. EXTRANEAL [Suspect]
     Indication: PERITONEAL DIALYSIS
     Route: 033
  2. DIANEAL [Suspect]
     Indication: PERITONEAL DIALYSIS
     Route: 033

REACTIONS (8)
  - CONVULSION [None]
  - RESPIRATORY FAILURE [None]
  - CLOSTRIDIAL INFECTION [None]
  - DEPRESSION [None]
  - INFECTIOUS PERITONITIS [None]
  - SEPSIS [None]
  - RENAL FAILURE CHRONIC [None]
  - FAILURE TO THRIVE [None]
